FAERS Safety Report 14984997 (Version 1)
Quarter: 2018Q2

REPORT INFORMATION
  Report Type: Spontaneous
  Country: US (occurrence: US)
  Receive Date: 20180607
  Receipt Date: 20180607
  Transmission Date: 20180711
  Serious: No
  Sender: FDA-Public Use
  Company Number: US-PFIZER INC-2018228628

PATIENT
  Age: 89 Year
  Sex: Male

DRUGS (1)
  1. LATANOPROST. [Suspect]
     Active Substance: LATANOPROST
     Dosage: UNK
     Route: 047

REACTIONS (4)
  - Eye irritation [Unknown]
  - Eyelid margin crusting [Unknown]
  - Foreign body sensation in eyes [Unknown]
  - Vision blurred [Unknown]
